FAERS Safety Report 5208886-8 (Version None)
Quarter: 2007Q1

REPORT INFORMATION
  Report Type: 
  Country: None (occurrence: None)
  Receive Date: 20070111
  Receipt Date: 20070111
  Transmission Date: 20070707
  Serious: Yes (Hospitalization, Disabling)
  Sender: FDA-Public Use
  Company Number: None

PATIENT
  Sex: Male

DRUGS (2)
  1. RISPERDAL CONSTA [Suspect]
     Indication: PSYCHOTIC DISORDER
     Dosage: 50 MG Q 2 WKS IM
     Route: 030
     Dates: start: 20060824, end: 20060921
  2. RISPERDAL [Suspect]
     Indication: PSYCHOTIC DISORDER
     Dosage: 6 MG QHS PO
     Route: 048
     Dates: start: 20060824, end: 20060927

REACTIONS (1)
  - PRIAPISM [None]
